FAERS Safety Report 8923504 (Version 2)
Quarter: 2013Q1

REPORT INFORMATION
  Report Type: Spontaneous
  Country: US (occurrence: US)
  Receive Date: 20121123
  Receipt Date: 20130328
  Transmission Date: 20140127
  Serious: Yes (Death, Hospitalization)
  Sender: FDA-Public Use
  Company Number: US-PFIZER INC-2012291529

PATIENT
  Age: 60 Year
  Sex: Male

DRUGS (2)
  1. SUTENT [Suspect]
     Indication: METASTATIC NEOPLASM
     Dosage: 50 MG DAILY, CYCLIC, 4WKS ON 2WKS OFF)
     Dates: start: 20120307
  2. SUTENT [Suspect]
     Indication: GASTROINTESTINAL NEOPLASM

REACTIONS (4)
  - Death [Fatal]
  - Gastrointestinal obstruction [Unknown]
  - Dysphagia [Unknown]
  - Vomiting [Unknown]
